FAERS Safety Report 22072685 (Version 1)
Quarter: 2023Q1

REPORT INFORMATION
  Report Type: Spontaneous
  Country: FR (occurrence: FR)
  Receive Date: 20230308
  Receipt Date: 20230308
  Transmission Date: 20230418
  Serious: Yes (Other)
  Sender: FDA-Public Use
  Company Number: FR-GSKCCFEMEA-Case-01680148_AE-67913

PATIENT

DRUGS (5)
  1. ZEJULA [Suspect]
     Active Substance: NIRAPARIB
     Indication: Product used for unknown indication
     Dosage: UNK
  2. MAGNESIUM [Concomitant]
     Active Substance: MAGNESIUM
     Indication: Product used for unknown indication
     Dosage: UNK
  3. GLUTATHIONE [Concomitant]
     Active Substance: GLUTATHIONE
     Indication: Product used for unknown indication
     Dosage: UNK
  4. PROPOLIS WAX [Concomitant]
     Active Substance: PROPOLIS WAX
     Indication: Product used for unknown indication
     Dosage: UNK
  5. HERBALS\TURMERIC [Concomitant]
     Active Substance: HERBALS\TURMERIC
     Indication: Product used for unknown indication
     Dosage: UNK

REACTIONS (9)
  - Age-related macular degeneration [Unknown]
  - Condition aggravated [Unknown]
  - Nausea [Unknown]
  - Malaise [Unknown]
  - Fatigue [Unknown]
  - Blood pressure increased [Unknown]
  - Bullous impetigo [Recovering/Resolving]
  - Sleep disorder [Unknown]
  - Impaired driving ability [Unknown]
